FAERS Safety Report 10082861 (Version 4)
Quarter: 2014Q3

REPORT INFORMATION
  Report Type: Spontaneous
  Country: JP (occurrence: JP)
  Receive Date: 20140416
  Receipt Date: 20140709
  Transmission Date: 20150326
  Serious: Yes (Death, Life-Threatening, Hospitalization, Other)
  Sender: FDA-Public Use
  Company Number: PHHY2014JP046505

PATIENT
  Age: 65 Year
  Sex: Male
  Weight: 44 kg

DRUGS (12)
  1. GASMOTIN [Concomitant]
     Active Substance: MOSAPRIDE CITRATE
     Dosage: 15 MG
     Route: 048
     Dates: start: 20130325, end: 20140404
  2. MAGMITT [Concomitant]
     Active Substance: MAGNESIUM OXIDE
     Dosage: 1500 MG
     Route: 048
     Dates: start: 20130404, end: 20140404
  3. AFINITOR [Suspect]
     Active Substance: EVEROLIMUS
     Indication: PANCREATIC NEUROENDOCRINE TUMOUR
     Dosage: 10 MG, DAILY
     Route: 048
     Dates: start: 20140319, end: 20140401
  4. SANDOSTATIN LAR DEPOT [Suspect]
     Active Substance: OCTREOTIDE ACETATE
     Route: 030
     Dates: start: 20130731, end: 20140319
  5. ADRENALINE [Concomitant]
     Active Substance: EPINEPHRINE
     Route: 048
     Dates: start: 20140319, end: 20140402
  6. REBAMIPIDE [Concomitant]
     Active Substance: REBAMIPIDE
     Dosage: 300 MG
     Route: 048
     Dates: start: 20040305, end: 20140404
  7. LOXONIN [Suspect]
     Active Substance: LOXOPROFEN SODIUM
     Dosage: 180 MG
     Route: 048
     Dates: start: 20140305, end: 20140404
  8. MELOXICAM. [Suspect]
     Active Substance: MELOXICAM
     Dosage: 10 MG
     Route: 048
     Dates: start: 20130430, end: 20140404
  9. SENNOSIDE [Concomitant]
     Active Substance: SENNOSIDES
     Dosage: 24 MG
     Route: 048
     Dates: start: 20140307, end: 20140404
  10. RANMARK [Concomitant]
     Active Substance: DENOSUMAB
     Dosage: 120 MG
     Route: 058
     Dates: start: 20140319, end: 20140319
  11. NEXIUM [Concomitant]
     Active Substance: ESOMEPRAZOLE MAGNESIUM
     Dosage: 20 MG
     Route: 048
     Dates: start: 20130321, end: 20140404
  12. DECADRON [Suspect]
     Active Substance: DEXAMETHASONE
     Dosage: 8 MG
     Route: 048
     Dates: start: 20140311, end: 20140404

REACTIONS (6)
  - Haemoglobin decreased [Unknown]
  - Upper gastrointestinal haemorrhage [Fatal]
  - Hypocalcaemia [Not Recovered/Not Resolved]
  - Duodenal ulcer haemorrhage [Fatal]
  - General physical health deterioration [Unknown]
  - Shock haemorrhagic [Fatal]

NARRATIVE: CASE EVENT DATE: 20140402
